FAERS Safety Report 8415926-1 (Version None)
Quarter: 2012Q2

REPORT INFORMATION
  Report Type: 
  Country: None (occurrence: None)
  Receive Date: 20120606
  Receipt Date: 20120530
  Transmission Date: 20120825
  Serious: Yes (Hospitalization)
  Sender: FDA-Public Use
  Company Number: US-UCBSA-057670

PATIENT
  Age: 56 Year
  Sex: Female

DRUGS (2)
  1. CIMZIA [Suspect]
     Indication: CROHN'S DISEASE
     Dates: start: 20120201
  2. MERCAPTOPURINE [Concomitant]
     Indication: CROHN'S DISEASE

REACTIONS (8)
  - INFLUENZA [None]
  - MYALGIA [None]
  - LOCAL SWELLING [None]
  - PNEUMONIA LEGIONELLA [None]
  - LYMPHADENOPATHY [None]
  - VOMITING [None]
  - ERYTHEMA [None]
  - PYREXIA [None]
